FAERS Safety Report 19881090 (Version 4)
Quarter: 2022Q2

REPORT INFORMATION
  Report Type: Report from Study
  Country: US (occurrence: US)
  Receive Date: 20210925
  Receipt Date: 20220422
  Transmission Date: 20220721
  Serious: No
  Sender: FDA-Public Use
  Company Number: NVSC2021US217812

PATIENT
  Sex: Female

DRUGS (2)
  1. COSENTYX [Suspect]
     Active Substance: SECUKINUMAB
     Indication: Psoriasis
     Dosage: UNK
     Route: 065
     Dates: start: 202107
  2. COSENTYX [Suspect]
     Active Substance: SECUKINUMAB
     Dosage: 300 MG
     Route: 065

REACTIONS (6)
  - Neuralgia [Not Recovered/Not Resolved]
  - Pruritus [Recovering/Resolving]
  - Pain in extremity [Not Recovered/Not Resolved]
  - Dry skin [Unknown]
  - Pain [Unknown]
  - Fibromyalgia [Unknown]
